FAERS Safety Report 16715558 (Version 7)
Quarter: 2020Q1

REPORT INFORMATION
  Report Type: Spontaneous
  Country: US (occurrence: US)
  Receive Date: 20190819
  Receipt Date: 20200306
  Transmission Date: 20200409
  Serious: Yes (Hospitalization)
  Sender: FDA-Public Use
  Company Number: US-PFIZER INC-2019330323

PATIENT
  Age: 73 Year
  Sex: Female

DRUGS (18)
  1. LYRICA [Suspect]
     Active Substance: PREGABALIN
     Indication: NEUROPATHY PERIPHERAL
     Dosage: 50 MG, 3X/DAY
     Route: 048
  2. LYRICA [Suspect]
     Active Substance: PREGABALIN
     Indication: DEGENERATIVE BONE DISEASE
  3. BUPROPION. [Concomitant]
     Active Substance: BUPROPION
     Dosage: 150 MG, 3X/DAY
  4. FUROSEMIDE. [Concomitant]
     Active Substance: FUROSEMIDE
     Dosage: 20 MG, 1X/DAY
  5. ESCITALOPRAM [Concomitant]
     Active Substance: ESCITALOPRAM OXALATE
     Dosage: 20 MG, DAILY
  6. DICLOFENAC SODIUM. [Concomitant]
     Active Substance: DICLOFENAC SODIUM
     Dosage: 75 MG, 2X/DAY
  7. PRESERVISION [Concomitant]
     Active Substance: MINERALS\VITAMINS
     Indication: PROPHYLAXIS
     Dosage: UNK UNK, DAILY(VERY WEAK DOSE, 2 SOFT GELS DAILY)
  8. GABAPENTIN. [Concomitant]
     Active Substance: GABAPENTIN
     Dosage: UNK
  9. PANTOPRAZOLE [Concomitant]
     Active Substance: PANTOPRAZOLE
     Dosage: 40 MG, 2X/DAY
  10. ROPINIROLE. [Concomitant]
     Active Substance: ROPINIROLE
     Dosage: 1 MG, 4X/DAY(1MG TABLET UP TO 4 TIMES DAILY)
  11. LYRICA [Suspect]
     Active Substance: PREGABALIN
     Indication: INTERVERTEBRAL DISC DEGENERATION
  12. SIMVASTATIN. [Concomitant]
     Active Substance: SIMVASTATIN
     Dosage: 10 MG, 1X/DAY(10MG TABLET EVERY NIGHT)
  13. FLUCONAZOLE. [Concomitant]
     Active Substance: FLUCONAZOLE
     Indication: FUNGAL SKIN INFECTION
     Dosage: 100 MG, AS NEEDED (DAILY FOR 7 DAYS AS NEEDED)
  14. MONTELUKAST [Concomitant]
     Active Substance: MONTELUKAST SODIUM
     Indication: SEASONAL ALLERGY
     Dosage: 10 MG, DAILY
  15. LYRICA [Suspect]
     Active Substance: PREGABALIN
     Indication: RESTLESS LEGS SYNDROME
     Dosage: 100 MG, 3X/DAY [1 PO TID (THREE TIMES A DAY)]
     Route: 048
  16. LYRICA [Suspect]
     Active Substance: PREGABALIN
     Indication: FIBROMYALGIA
     Dosage: 75 MG, 3X/DAY
     Route: 048
     Dates: end: 20191101
  17. BUPROPION. [Concomitant]
     Active Substance: BUPROPION
     Dosage: 150 MG, 2X/DAY
  18. CYCLOBENZAPRINE. [Concomitant]
     Active Substance: CYCLOBENZAPRINE
     Indication: MUSCLE SPASMS
     Dosage: 10 MG, DAILY
     Route: 048

REACTIONS (7)
  - Escherichia infection [Recovering/Resolving]
  - Amnesia [Unknown]
  - Intentional product misuse [Unknown]
  - Weight increased [Not Recovered/Not Resolved]
  - Hunger [Unknown]
  - Gait disturbance [Recovering/Resolving]
  - Renal failure [Recovered/Resolved]

NARRATIVE: CASE EVENT DATE: 2019
